FAERS Safety Report 12357012 (Version 1)
Quarter: 2016Q2

REPORT INFORMATION
  Report Type: Spontaneous
  Country: IL (occurrence: IL)
  Receive Date: 20160511
  Receipt Date: 20160511
  Transmission Date: 20160815
  Serious: Yes (Hospitalization, Other)
  Sender: FDA-Public Use
  Company Number: IL-PFIZER INC-2016243837

PATIENT
  Age: 70 Year
  Sex: Female

DRUGS (2)
  1. PHENYTOIN. [Suspect]
     Active Substance: PHENYTOIN
     Dosage: 300 MG, DAILY
  2. PHENYTOIN. [Suspect]
     Active Substance: PHENYTOIN
     Indication: EPILEPSY
     Dosage: 100 MG, 3X/DAY

REACTIONS (8)
  - Nystagmus [Unknown]
  - Hyporeflexia [Unknown]
  - Toxicity to various agents [Unknown]
  - Confusional state [Unknown]
  - Disorientation [Unknown]
  - Ataxia [Unknown]
  - Hypothyroidism [Unknown]
  - Dizziness [Unknown]
